FAERS Safety Report 17787025 (Version 2)
Quarter: 2020Q3

REPORT INFORMATION
  Report Type: Report from Study
  Country: US (occurrence: US)
  Receive Date: 20200514
  Receipt Date: 20200716
  Transmission Date: 20201102
  Serious: Yes (Hospitalization)
  Sender: FDA-Public Use
  Company Number: US-BIOGEN-2020BI00870277

PATIENT
  Sex: Female

DRUGS (6)
  1. TYSABRI [Suspect]
     Active Substance: NATALIZUMAB
     Indication: MULTIPLE SCLEROSIS
     Dosage: INFUSED OVER 1 HOUR
     Route: 042
     Dates: start: 20081204, end: 20191203
  2. RISPERDAL [Concomitant]
     Active Substance: RISPERIDONE
     Indication: ANXIETY
     Route: 065
  3. MORPHINE [Concomitant]
     Active Substance: MORPHINE
     Indication: PAIN
     Route: 065
  4. ROBAXINE [Concomitant]
     Indication: ANXIETY
     Route: 065
  5. METHAMPHETAMINE [Suspect]
     Active Substance: METHAMPHETAMINE
     Indication: PRODUCT USED FOR UNKNOWN INDICATION
     Route: 065
  6. GABAPENTIN. [Concomitant]
     Active Substance: GABAPENTIN
     Indication: ANXIETY
     Route: 065

REACTIONS (2)
  - Drug abuse [Unknown]
  - Mental disorder [Unknown]
